FAERS Safety Report 14229427 (Version 2)
Quarter: 2018Q1

REPORT INFORMATION
  Report Type: Spontaneous
  Country: JP (occurrence: JP)
  Receive Date: 20171128
  Receipt Date: 20180102
  Transmission Date: 20180508
  Serious: Yes (Hospitalization, Other)
  Sender: FDA-Public Use
  Company Number: JP-TEVA-814756ACC

PATIENT
  Age: 66 Year
  Sex: Female

DRUGS (4)
  1. BENDAMUSTINE HYDROCHLORIDE. [Suspect]
     Active Substance: BENDAMUSTINE HYDROCHLORIDE
     Indication: EXTRANODAL MARGINAL ZONE B-CELL LYMPHOMA (MALT TYPE)
     Route: 042
     Dates: start: 20170905, end: 20170906
  2. RITUXIMAB. [Concomitant]
     Active Substance: RITUXIMAB
     Indication: EXTRANODAL MARGINAL ZONE B-CELL LYMPHOMA (MALT TYPE)
     Route: 041
     Dates: start: 20170907
  3. RITUXIMAB. [Concomitant]
     Active Substance: RITUXIMAB
     Route: 041
     Dates: start: 20171004
  4. BENDAMUSTINE HYDROCHLORIDE. [Suspect]
     Active Substance: BENDAMUSTINE HYDROCHLORIDE
     Route: 042
     Dates: start: 20171002, end: 20171003

REACTIONS (5)
  - Hepatic function abnormal [Recovering/Resolving]
  - Prescribed underdose [Unknown]
  - Toxic skin eruption [Recovered/Resolved]
  - Stomatitis [Recovered/Resolved]
  - Leukopenia [Recovered/Resolved]

NARRATIVE: CASE EVENT DATE: 201709
